FAERS Safety Report 7533723-6 (Version None)
Quarter: 2011Q2

REPORT INFORMATION
  Report Type: 
  Country: None (occurrence: None)
  Receive Date: 20110608
  Receipt Date: 20060424
  Transmission Date: 20111010
  Serious: Yes (Other)
  Sender: FDA-Public Use
  Company Number: PHHO2006JP06681

PATIENT
  Sex: Female

DRUGS (5)
  1. NORVASC [Concomitant]
     Dosage: 5 MG, DAILY
     Route: 048
     Dates: start: 20030115
  2. CELECTOL [Concomitant]
     Dosage: 200 MG, DAILY
     Route: 048
     Dates: start: 20030115
  3. DOXAZOSIN MESYLATE [Concomitant]
     Dosage: 2 MG, DAILY
     Route: 048
     Dates: start: 20030115
  4. SIMVASTATIN [Concomitant]
     Dosage: 5 MG, DAILY
     Route: 048
  5. DIOVAN [Suspect]
     Indication: HYPERTENSION
     Dosage: 80 MG, QD
     Route: 048
     Dates: start: 20030121, end: 20051011

REACTIONS (2)
  - BREAST ADENOMA [None]
  - THYROID ADENOMA [None]
